FAERS Safety Report 6639334-9 (Version None)
Quarter: 2010Q1

REPORT INFORMATION
  Report Type: 
  Country: None (occurrence: None)
  Receive Date: 20100315
  Receipt Date: 20100303
  Transmission Date: 20100710
  Serious: Yes (Other)
  Sender: FDA-Public Use
  Company Number: 008172

PATIENT
  Sex: Female
  Weight: 67.5 kg

DRUGS (8)
  1. LACOSAMIDE [Suspect]
     Indication: CONVULSION
     Dosage: (50 MG BID ORAL)
     Route: 048
     Dates: start: 20100302, end: 20100302
  2. DILANTIN [Concomitant]
  3. PHENOBARBITAL TAB [Concomitant]
  4. CLARITIN /00917501/ [Concomitant]
  5. PRILOSEC [Concomitant]
  6. ASTELIN [Concomitant]
  7. ALBUTEROL SULFATE [Concomitant]
  8. ADVAIR DISKUS 100/50 [Concomitant]

REACTIONS (3)
  - BLOOD PRESSURE DECREASED [None]
  - HANGOVER [None]
  - HEART RATE DECREASED [None]
